FAERS Safety Report 15563417 (Version 2)
Quarter: 2018Q4

REPORT INFORMATION
  Report Type: Spontaneous
  Country: US (occurrence: US)
  Receive Date: 20181029
  Receipt Date: 20181122
  Transmission Date: 20190205
  Serious: No
  Sender: FDA-Public Use
  Company Number: US-B.I. PHARMACEUTICALS,INC./RIDGEFIELD-2018-BI-051046

PATIENT
  Sex: Female

DRUGS (1)
  1. STIOLTO RESPIMAT [Suspect]
     Active Substance: OLODATEROL HYDROCHLORIDE\TIOTROPIUM BROMIDE MONOHYDRATE
     Indication: PRODUCT USED FOR UNKNOWN INDICATION
     Dosage: FORM STRENGTH: 2.5 MCG; FORMULATION: INHALATION SPRAY? ?ACTION(S) TAKEN WITH PRODUCT: DRUG WITHDRAWN
     Route: 065

REACTIONS (10)
  - Tongue erythema [Unknown]
  - Mouth swelling [Unknown]
  - Stomatitis [Unknown]
  - Feeding disorder [Unknown]
  - Dysphagia [Unknown]
  - Glossodynia [Unknown]
  - Swollen tongue [Unknown]
  - Oral pain [Unknown]
  - Glossitis [Unknown]
  - Oral mucosal erythema [Unknown]
